FAERS Safety Report 10390277 (Version 2)
Quarter: 2014Q3

REPORT INFORMATION
  Report Type: Spontaneous
  Country: US (occurrence: None)
  Receive Date: 20140814
  Receipt Date: 20140916
  Transmission Date: 20150326
  Serious: Yes (Other)
  Sender: FDA-Public Use
  Company Number: US-H14001-14-00350

PATIENT
  Age: 18 Year
  Sex: Female

DRUGS (1)
  1. GLYCOPYRROLATE INJECTION [Suspect]
     Active Substance: GLYCOPYRROLATE
     Indication: SALIVARY HYPERSECRETION
     Route: 042
     Dates: start: 20140725

REACTIONS (3)
  - Tremor [None]
  - Blood pressure increased [None]
  - Tachycardia [None]

NARRATIVE: CASE EVENT DATE: 20140725
